FAERS Safety Report 11368350 (Version 1)
Quarter: 2015Q3

REPORT INFORMATION
  Report Type: Spontaneous
  Country: JO (occurrence: None)
  Receive Date: 20150810
  Receipt Date: 20150810
  Transmission Date: 20151125
  Serious: Yes (Other)
  Sender: FDA-Public Use
  Company Number: IPC201507-000496

PATIENT
  Sex: Male
  Weight: 2.21 kg

DRUGS (3)
  1. PROPRANOLOL HYDROCHLORIDE (PROPRANOLOL HYDROCHLORIDE) (PROPRANOLOL HYDROCHLORIDE) [Suspect]
     Active Substance: PROPRANOLOL HYDROCHLORIDE
     Indication: HYPERTHYROIDISM
     Dosage: 2 MG/KG/DAY, DIVIDED IN 2 DOSES
     Route: 048
  2. CARBIMAZOLE (CARBIMAZOLE) (CARBIMAZOLE) [Concomitant]
     Active Substance: CARBIMAZOLE
  3. AMLODIPINE BESILATE (AMLODIPINE BESILATE) (AMLODIPINE BESILATE) [Suspect]
     Active Substance: AMLODIPINE BESYLATE
     Indication: HYPERTENSION
     Route: 048

REACTIONS (3)
  - Hypotension [None]
  - Drug interaction [None]
  - Off label use [None]
